FAERS Safety Report 17399293 (Version 3)
Quarter: 2025Q4

REPORT INFORMATION
  Report Type: Spontaneous
  Country: EU (occurrence: EU)
  Receive Date: 20200211
  Receipt Date: 20251212
  Transmission Date: 20260117
  Serious: Yes (Other)
  Sender: RANBAXY
  Company Number: EU-EMA-DD-20200116-GONUGUNTLA_N1-103954

PATIENT
  Age: 68 Year
  Sex: Female

DRUGS (19)
  1. TEMOZOLOMIDE [Suspect]
     Active Substance: TEMOZOLOMIDE
     Indication: Metastases to central nervous system
     Dosage: ()
     Route: 065
  2. TEMOZOLOMIDE [Suspect]
     Active Substance: TEMOZOLOMIDE
     Indication: Metastases to adrenals
     Dosage: ()
     Route: 065
  3. TEMOZOLOMIDE [Suspect]
     Active Substance: TEMOZOLOMIDE
     Indication: Neuroendocrine breast tumour
     Dosage: 200 MILLIGRAM/SQ. METER, ONCE DAILY, DAY 10-14, EVERY 28 DAYS FOR 4 CYCLES
     Route: 048
     Dates: start: 201504, end: 2015
  4. TEMOZOLOMIDE [Suspect]
     Active Substance: TEMOZOLOMIDE
     Indication: Metastases to lymph nodes
     Dosage: 50% DOSE REDUCTION (100 MILLIGRAM/SQ. METER, ONCE DAILY, DAY 10-14, EVERY 28 DAYS) FOR A FURTHER TWO
     Route: 048
     Dates: start: 2015, end: 201601
  5. TEMOZOLOMIDE [Suspect]
     Active Substance: TEMOZOLOMIDE
     Indication: Metastases to lung
     Dosage: ()
     Route: 065
  6. TEMOZOLOMIDE [Suspect]
     Active Substance: TEMOZOLOMIDE
     Indication: Metastases to liver
     Dosage: ()
     Route: 065
  7. TEMOZOLOMIDE [Suspect]
     Active Substance: TEMOZOLOMIDE
     Indication: Metastases to bone
     Dosage: 25% DOSE REDUCTION (150 MILLIGRAM/SQ. METER, ONCE DAILY, DAY 10-14, EVERY 28 DAYS) FOR A FURTHER TWO
     Route: 048
     Dates: start: 2015, end: 2015
  8. CAPECITABINE [Suspect]
     Active Substance: CAPECITABINE
     Indication: Neuroendocrine breast tumour
     Dosage: 2000 MILLIGRAM/SQ. METER, DAILY, DAY 1-14, EVERY 28 DAYS FOR 4 CYCLES
     Route: 048
     Dates: start: 201504, end: 2015
  9. CAPECITABINE [Suspect]
     Active Substance: CAPECITABINE
     Indication: Metastases to bone
     Dosage: 25% DOSE REDUCTION (1500MILLIGRAM/SQ. METER, ONCE DAILY, DAY 1-14, EVERY 28 DAYS) FOR A FURTHER T...
     Route: 048
     Dates: start: 2015, end: 2015
  10. CAPECITABINE [Suspect]
     Active Substance: CAPECITABINE
     Indication: Metastases to lung
     Dosage: ()
     Route: 065
  11. CAPECITABINE [Suspect]
     Active Substance: CAPECITABINE
     Indication: Metastases to lymph nodes
     Dosage: 50% DOSE REDUCTION (1000 MILLIGRAM/SQ. METER, ONCE DAILY, DAY 1-14, EVERY 28 DAYS) FOR A FURTHER ...
     Route: 048
     Dates: start: 2015, end: 201601
  12. CAPECITABINE [Suspect]
     Active Substance: CAPECITABINE
     Indication: Metastases to central nervous system
     Dosage: ()
     Route: 065
  13. CAPECITABINE [Suspect]
     Active Substance: CAPECITABINE
     Indication: Metastases to adrenals
     Dosage: ()
     Route: 065
  14. CAPECITABINE [Suspect]
     Active Substance: CAPECITABINE
     Indication: Metastases to liver
     Dosage: ()
     Route: 065
  15. CISPLATIN [Suspect]
     Active Substance: CISPLATIN
     Indication: Chemotherapy
     Dosage: UNK
     Route: 065
     Dates: start: 201011, end: 201103
  16. ETOPOSIDE [Suspect]
     Active Substance: ETOPOSIDE
     Indication: Chemotherapy
     Dosage: UNK
     Route: 065
     Dates: start: 201011, end: 201103
  17. CYCLOPHOSPHAMIDE [Suspect]
     Active Substance: CYCLOPHOSPHAMIDE
     Indication: Chemotherapy
     Dosage: UNK
     Route: 065
     Dates: start: 201306, end: 201311
  18. DOXORUBICIN [Suspect]
     Active Substance: DOXORUBICIN
     Indication: Chemotherapy
     Dosage: UNK
     Route: 065
     Dates: start: 201306, end: 201311
  19. VINCRISTINE [Suspect]
     Active Substance: VINCRISTINE
     Indication: Chemotherapy
     Dosage: UNK
     Route: 065
     Dates: start: 201306, end: 201311

REACTIONS (8)
  - Thrombocytopenia [Unknown]
  - Off label use [Unknown]
  - Cognitive disorder [Unknown]
  - Therapeutic product effect incomplete [Unknown]
  - Haematological malignancy [Unknown]
  - Neurotoxicity [Unknown]
  - Therapeutic product effect incomplete [Unknown]
  - Fatigue [Unknown]

NARRATIVE: CASE EVENT DATE: 20150101
